FAERS Safety Report 8177918-X (Version None)
Quarter: 2012Q1

REPORT INFORMATION
  Report Type: 
  Country: None (occurrence: None)
  Receive Date: 20120130
  Receipt Date: 20111028
  Transmission Date: 20120608
  Serious: Yes (Hospitalization)
  Sender: FDA-Public Use
  Company Number: 032589

PATIENT
  Age: 25 Year
  Sex: Female
  Weight: 57 kg

DRUGS (2)
  1. LEVETIRACETAM [Suspect]
     Indication: EPILEPSY
     Dosage: (100 MG INTRAVENOUS (NOT OTHERWISE SPECIFIED)) ; (100 MG, DAILY DOSE:100 MG)
     Route: 042
     Dates: start: 20051011
  2. LEVETIRACETAM [Suspect]
     Indication: EPILEPSY
     Dosage: (100 MG INTRAVENOUS (NOT OTHERWISE SPECIFIED)) ; (100 MG, DAILY DOSE:100 MG)
     Route: 042
     Dates: start: 20090502

REACTIONS (2)
  - NAUSEA [None]
  - FATIGUE [None]
